FAERS Safety Report 5979375-8 (Version None)
Quarter: 2008Q4

REPORT INFORMATION
  Report Type: 
  Country: None (occurrence: None)
  Receive Date: 20081204
  Receipt Date: 20080823
  Transmission Date: 20090506
  Serious: No
  Sender: FDA-Public Use
  Company Number: US-AMGEN-KDL303556

PATIENT
  Sex: Male

DRUGS (2)
  1. ENBREL [Suspect]
     Indication: RHEUMATOID ARTHRITIS
     Route: 058
     Dates: start: 20080805
  2. PLAQUENIL [Concomitant]
     Route: 048

REACTIONS (3)
  - LOCAL SWELLING [None]
  - PAIN [None]
  - SECRETION DISCHARGE [None]
